FAERS Safety Report 4635817-1 (Version None)
Quarter: 2005Q2

REPORT INFORMATION
  Report Type: 
  Country: None (occurrence: None)
  Receive Date: 20050415
  Receipt Date: 20050304
  Transmission Date: 20051028
  Serious: Yes (Other)
  Sender: FDA-Public Use
  Company Number: JP-JNJFOC-20040301707

PATIENT
  Sex: Female
  Weight: 38 kg

DRUGS (16)
  1. REMICADE [Suspect]
     Indication: CROHN'S DISEASE
     Route: 041
  2. ECABET SODIUM [Concomitant]
  3. PENTASA [Concomitant]
     Route: 065
     Dates: start: 20031014
  4. PREDONINE [Concomitant]
     Route: 049
     Dates: start: 20031031
  5. DEPAS [Concomitant]
     Route: 065
  6. PANTOL [Concomitant]
     Route: 065
  7. NEO-MINOPHAGEN C [Concomitant]
  8. AMLODIPINE BESYLATE [Concomitant]
  9. ATORVASTATIN CALCIUM [Concomitant]
  10. BIO THREE [Concomitant]
  11. CALCITRIOL [Concomitant]
  12. CALCIUM LACTATE [Concomitant]
  13. LANSOPRAZOLE [Concomitant]
  14. POLYENPHOSPHATIDYL CHOLINE [Concomitant]
  15. FERROUS CITRATE [Concomitant]
  16. ZOLPIDEM TARTRATE [Concomitant]

REACTIONS (1)
  - HEPATIC FUNCTION ABNORMAL [None]
